FAERS Safety Report 8840101 (Version 1)
Quarter: 2012Q4

REPORT INFORMATION
  Report Type: Report from Study
  Country: BE (occurrence: BE)
  Receive Date: 20121015
  Receipt Date: 20121015
  Transmission Date: 20130627
  Serious: Yes (Hospitalization, Other)
  Sender: FDA-Public Use
  Company Number: BE-TEVA-364612USA

PATIENT
  Age: 78 Year
  Sex: Male
  Weight: 115 kg

DRUGS (6)
  1. TREANDA [Suspect]
     Dates: start: 20120516, end: 20120810
  2. SIMVASTATIN [Concomitant]
  3. GLUCOPHAGE [Concomitant]
  4. EMCORETIC [Concomitant]
  5. ATACAND [Concomitant]
  6. AGGRENOX [Concomitant]

REACTIONS (1)
  - Pulmonary embolism [Recovered/Resolved]
